FAERS Safety Report 6398206-8 (Version None)
Quarter: 2009Q4

REPORT INFORMATION
  Report Type: 
  Country: None (occurrence: None)
  Receive Date: 20091013
  Receipt Date: 20090929
  Transmission Date: 20100525
  Serious: Yes (Other)
  Sender: FDA-Public Use
  Company Number: PHHY2009GB42155

PATIENT
  Sex: Male

DRUGS (3)
  1. CLOZARIL [Suspect]
     Indication: SCHIZOPHRENIA
     Dosage: UNK
     Dates: start: 20060125
  2. ALCOHOL [Concomitant]
  3. DRUG THERAPY NOS [Concomitant]

REACTIONS (1)
  - MULTIPLE DRUG OVERDOSE [None]
